FAERS Safety Report 9746926 (Version 1)
Quarter: 2013Q4

REPORT INFORMATION
  Report Type: Spontaneous
  Country: US (occurrence: US)
  Receive Date: 20131211
  Receipt Date: 20131211
  Transmission Date: 20140711
  Serious: No
  Sender: FDA-Public Use
  Company Number: US-GILEAD-2013-0089723

PATIENT
  Age: 56 Year
  Sex: Male

DRUGS (2)
  1. LETAIRIS [Suspect]
     Indication: PULMONARY ARTERIAL HYPERTENSION
     Dosage: 10 MG, QD
     Route: 048
     Dates: start: 20111223
  2. FLOLAN [Concomitant]
     Indication: PULMONARY ARTERIAL HYPERTENSION
     Dates: start: 20130713

REACTIONS (2)
  - Abdominal distension [Unknown]
  - Dyspnoea [Unknown]
